FAERS Safety Report 9493129 (Version 1)
Quarter: 2013Q3

REPORT INFORMATION
  Report Type: Report from Study
  Country: US (occurrence: US)
  Receive Date: 20130902
  Receipt Date: 20130902
  Transmission Date: 20140515
  Serious: Yes (Other)
  Sender: FDA-Public Use
  Company Number: US-ROCHE-1269013

PATIENT
  Sex: Male

DRUGS (4)
  1. RITUXAN [Suspect]
     Indication: POLYNEUROPATHY
     Route: 042
     Dates: start: 20130107
  2. RITUXAN [Suspect]
     Route: 042
     Dates: start: 20130722
  3. DEXAMETHASONE SODIUM PHOSPHATE [Concomitant]
     Route: 042
  4. ACETAMINOPHEN [Concomitant]
     Route: 048

REACTIONS (1)
  - Myasthenia gravis [Unknown]
